FAERS Safety Report 24272184 (Version 5)
Quarter: 2024Q4

REPORT INFORMATION
  Report Type: Spontaneous
  Country: JP (occurrence: JP)
  Receive Date: 20240902
  Receipt Date: 20241216
  Transmission Date: 20250115
  Serious: Yes (Life-Threatening, Hospitalization)
  Sender: ROCHE
  Company Number: JP-CHUGAI-2024015151AA

PATIENT
  Age: 9 Decade
  Sex: Male
  Weight: 55 kg

DRUGS (8)
  1. HEMLIBRA [Suspect]
     Active Substance: EMICIZUMAB-KXWH
     Indication: Acquired haemophilia
     Dosage: 90 MILLIGRAM, ONCE/WEEK
     Route: 058
     Dates: start: 20240322, end: 20240322
  2. HEMLIBRA [Suspect]
     Active Substance: EMICIZUMAB-KXWH
     Dosage: 90 MILLIGRAM, ONCE/WEEK
     Route: 058
     Dates: start: 20240325, end: 20240325
  3. HEMLIBRA [Suspect]
     Active Substance: EMICIZUMAB-KXWH
     Dosage: 90 MILLIGRAM, ONCE/WEEK
     Route: 058
     Dates: start: 20240329, end: 20240531
  4. NOVOSEVEN [Suspect]
     Active Substance: COAGULATION FACTOR VIIA RECOMBINANT HUMAN
     Indication: Product used for unknown indication
     Route: 042
     Dates: start: 20240319, end: 20240321
  5. PREDONINE [Suspect]
     Active Substance: PREDNISOLONE
     Indication: Product used for unknown indication
     Route: 048
     Dates: start: 20240321, end: 20240325
  6. PREDONINE [Suspect]
     Active Substance: PREDNISOLONE
     Route: 048
     Dates: start: 20240326, end: 20240403
  7. PREDONINE [Suspect]
     Active Substance: PREDNISOLONE
     Route: 048
     Dates: start: 20240404, end: 20240425
  8. PREDONINE [Suspect]
     Active Substance: PREDNISOLONE
     Route: 048
     Dates: start: 20240426, end: 20240529

REACTIONS (5)
  - Deep vein thrombosis [Recovered/Resolved]
  - Activated partial thromboplastin time prolonged [Unknown]
  - Urinary tract infection [Recovered/Resolved]
  - COVID-19 [Recovered/Resolved]
  - Escherichia bacteraemia [Recovered/Resolved]

NARRATIVE: CASE EVENT DATE: 20240325
